FAERS Safety Report 6654569-7 (Version None)
Quarter: 2010Q1

REPORT INFORMATION
  Report Type: 
  Country: None (occurrence: None)
  Receive Date: 20100326
  Receipt Date: 20100316
  Transmission Date: 20100710
  Serious: Yes (Other)
  Sender: FDA-Public Use
  Company Number: US-PFIZER INC-2008081326

PATIENT
  Sex: Female
  Weight: 68.04 kg

DRUGS (8)
  1. DILANTIN [Suspect]
     Indication: CONVULSION
     Dosage: 300 MG, 1X/DAY
     Route: 048
  2. SPIRIVA [Suspect]
     Indication: CHRONIC OBSTRUCTIVE PULMONARY DISEASE
     Dosage: 18 UG, 1X/DAY
     Dates: start: 20091201
  3. PROVENTIL GENTLEHALER [Concomitant]
     Indication: CHRONIC OBSTRUCTIVE PULMONARY DISEASE
     Dosage: UNK
     Dates: start: 20091201
  4. PROVENTIL GENTLEHALER [Concomitant]
     Indication: ASTHMA
  5. NEURONTIN [Concomitant]
     Indication: ILL-DEFINED DISORDER
     Dosage: 1800 MG, UNK
     Route: 048
     Dates: start: 20000101
  6. NEURONTIN [Concomitant]
     Indication: CONVULSION
  7. PREVACID [Concomitant]
     Indication: GASTROOESOPHAGEAL REFLUX DISEASE
     Dosage: 70 MG, DAILY
     Route: 048
     Dates: start: 19970101
  8. ZOCOR [Concomitant]
     Indication: BLOOD CHOLESTEROL INCREASED
     Dosage: UNK
     Dates: start: 20020101

REACTIONS (4)
  - ALTERED STATE OF CONSCIOUSNESS [None]
  - CONVULSION [None]
  - DRUG INEFFECTIVE [None]
  - DYSPHONIA [None]
